FAERS Safety Report 10581486 (Version 1)
Quarter: 2014Q4

REPORT INFORMATION
  Report Type: Spontaneous
  Country: US (occurrence: None)
  Receive Date: 20141112
  Receipt Date: 20141112
  Transmission Date: 20150529
  Serious: Yes (Disabling)
  Sender: FDA-Public Use
  Company Number: None

PATIENT
  Age: 48 Year
  Sex: Female
  Weight: 56.7 kg

DRUGS (3)
  1. PREDNISOLONE. [Suspect]
     Active Substance: PREDNISOLONE
     Indication: BACK PAIN
  2. PREDNISOLONE. [Suspect]
     Active Substance: PREDNISOLONE
  3. PREDNISOLONE. [Suspect]
     Active Substance: PREDNISOLONE
     Indication: INTERVERTEBRAL DISC PROTRUSION

REACTIONS (5)
  - Tremor [None]
  - Cyst [None]
  - Injection site pain [None]
  - Wrong technique in drug usage process [None]
  - Intervertebral disc disorder [None]

NARRATIVE: CASE EVENT DATE: 20121218
